FAERS Safety Report 19577104 (Version 2)
Quarter: 2022Q2

REPORT INFORMATION
  Report Type: Spontaneous
  Country: US (occurrence: US)
  Receive Date: 20210719
  Receipt Date: 20220429
  Transmission Date: 20220721
  Serious: No
  Sender: FDA-Public Use
  Company Number: US-PFIZER INC-2021874908

PATIENT
  Age: 62 Year
  Sex: Male
  Weight: 95.25 kg

DRUGS (1)
  1. PHENYTOIN SODIUM [Suspect]
     Active Substance: PHENYTOIN SODIUM
     Indication: Seizure
     Dosage: UNK (DOSE UNKNOWN THINKS IT WAS EITHER 600MG OR 800MG TWICE A DAY BY MOUTH)
     Route: 048

REACTIONS (3)
  - Blood test abnormal [Unknown]
  - Dizziness [Recovered/Resolved]
  - Drug level decreased [Recovered/Resolved]
